FAERS Safety Report 5399738-1 (Version None)
Quarter: 2007Q3

REPORT INFORMATION
  Report Type: 
  Country: None (occurrence: None)
  Receive Date: 20070727
  Receipt Date: 20070718
  Transmission Date: 20080115
  Serious: Yes (Other)
  Sender: FDA-Public Use
  Company Number: US-ABBOTT-07P-163-0371669-00

PATIENT
  Sex: Male
  Weight: 95.5 kg

DRUGS (5)
  1. TRICOR [Suspect]
     Indication: DRUG USE FOR UNKNOWN INDICATION
     Dates: start: 20050101
  2. LOVASTATIN [Interacting]
     Indication: DRUG USE FOR UNKNOWN INDICATION
     Dosage: LOW DOSE
     Dates: start: 20070118, end: 20070501
  3. ACE INHIBITOR NOS [Suspect]
     Indication: DRUG USE FOR UNKNOWN INDICATION
  4. IBUPROFEN [Suspect]
     Indication: MIGRAINE
  5. EPHEDRA MIX [Suspect]
     Indication: WEIGHT LOSS DIET
     Dates: start: 20070601

REACTIONS (3)
  - DRUG INTERACTION [None]
  - RENAL FAILURE [None]
  - RHABDOMYOLYSIS [None]
